FAERS Safety Report 23742424 (Version 1)
Quarter: 2024Q2

REPORT INFORMATION
  Report Type: Spontaneous
  Country: US (occurrence: US)
  Receive Date: 20240415
  Receipt Date: 20240415
  Transmission Date: 20240715
  Serious: No
  Sender: FDA-Public Use
  Company Number: US-CSLP-61511347671-V13334145-34

PATIENT
  Age: 36 Year
  Sex: Female

DRUGS (4)
  1. ANTICOAGULANT SODIUM CITRATE [Suspect]
     Active Substance: SODIUM CITRATE
     Indication: Anticoagulant therapy
     Route: 050
     Dates: start: 20240328, end: 20240328
  2. BUSPIRONE [Concomitant]
     Active Substance: BUSPIRONE HYDROCHLORIDE
     Indication: Anxiety
  3. PROPRANOLOL [Concomitant]
     Active Substance: PROPRANOLOL HYDROCHLORIDE
     Indication: Anxiety
  4. TRINTELLIX [Concomitant]
     Active Substance: VORTIOXETINE HYDROBROMIDE
     Indication: Depression

REACTIONS (7)
  - Dizziness [Recovered/Resolved]
  - Hypoaesthesia [Recovered/Resolved]
  - Abdominal pain [Recovered/Resolved]
  - Pallor [Recovered/Resolved]
  - Paraesthesia [Recovered/Resolved]
  - Hypoaesthesia oral [Recovered/Resolved]
  - Paraesthesia oral [Recovered/Resolved]

NARRATIVE: CASE EVENT DATE: 20240328
